FAERS Safety Report 9367067 (Version 2)
Quarter: 2013Q4

REPORT INFORMATION
  Report Type: Spontaneous
  Country: US (occurrence: US)
  Receive Date: 20130625
  Receipt Date: 20131202
  Transmission Date: 20140711
  Serious: Yes (Other)
  Sender: FDA-Public Use
  Company Number: US-PERRIGO-13US006493

PATIENT
  Age: 52 Year
  Sex: Female
  Weight: 58.05 kg

DRUGS (2)
  1. DOXYLAMINE SUCCINATE 25 MG 441 [Suspect]
     Indication: OFF LABEL USE
     Dosage: 25MGX3
     Route: 048
     Dates: start: 201011, end: 201011
  2. VITAMINS NOS [Concomitant]
     Indication: SUPPLEMENTATION THERAPY
     Dosage: UNKNOWN, UNKNOWN
     Route: 048

REACTIONS (8)
  - Hallucination [Recovered/Resolved]
  - Delusion [Recovered/Resolved]
  - Disorientation [Recovered/Resolved]
  - Euphoric mood [Recovered/Resolved]
  - Feeling abnormal [Recovered/Resolved]
  - Abnormal dreams [Recovered/Resolved]
  - Incorrect dose administered [Recovered/Resolved]
  - Off label use [Recovered/Resolved]
